FAERS Safety Report 7125987-8 (Version None)
Quarter: 2010Q4

REPORT INFORMATION
  Report Type: 
  Country: None (occurrence: None)
  Receive Date: 20101115
  Receipt Date: 20101115
  Transmission Date: 20110411
  Serious: Yes (Other)
  Sender: FDA-Public Use
  Company Number: OMPQ-NO-1011S-0959

PATIENT
  Age: 63 Year
  Sex: Male
  Weight: 70 kg

DRUGS (1)
  1. OMNIPAQUE 140 [Suspect]
     Indication: CHRONIC OBSTRUCTIVE PULMONARY DISEASE
     Dosage: 60 ML, SINGLE DOSE, I.V.
     Route: 042
     Dates: start: 20101101, end: 20101101

REACTIONS (2)
  - CHILLS [None]
  - HYPOTHERMIA [None]
